FAERS Safety Report 5302071-7 (Version None)
Quarter: 2007Q2

REPORT INFORMATION
  Report Type: 
  Country: None (occurrence: None)
  Receive Date: 20070416
  Receipt Date: 20070416
  Transmission Date: 20071010
  Serious: Yes (Other)
  Sender: FDA-Public Use
  Company Number: None

PATIENT
  Age: 39 Year
  Sex: Female
  Weight: 72.5755 kg

DRUGS (1)
  1. CIPRO [Suspect]
     Indication: ESCHERICHIA INFECTION
     Dosage: 500 MG
     Dates: start: 20061205, end: 20061206

REACTIONS (2)
  - FEELING ABNORMAL [None]
  - HALLUCINATION [None]
